FAERS Safety Report 19060876 (Version 1)
Quarter: 2021Q1

REPORT INFORMATION
  Report Type: Spontaneous
  Country: NL (occurrence: NL)
  Receive Date: 20210326
  Receipt Date: 20210326
  Transmission Date: 20210420
  Serious: Yes (Other)
  Sender: FDA-Public Use
  Company Number: NL-SA-2021SA102279

PATIENT
  Age: 67 Year
  Sex: Female
  Weight: 61 kg

DRUGS (4)
  1. ITULAZAX [BETULA PENDULA POLLEN] [Concomitant]
     Dosage: UNK
     Route: 048
  2. FEXOFENADINE [Concomitant]
     Active Substance: FEXOFENADINE HYDROCHLORIDE
     Dosage: 180 MG
  3. DUPILUMAB [Suspect]
     Active Substance: DUPILUMAB
     Indication: ASTHMA
     Dosage: 1 DF, QOW
     Dates: start: 20210122, end: 20210205
  4. SALMETEROL AND FLUTICASONE [Concomitant]
     Active Substance: FLUTICASONE PROPIONATE\SALMETEROL XINAFOATE
     Dosage: AEROSOL, 25/250 G / DOSE (MICROGRAMS PER DOSE)

REACTIONS (17)
  - Chest discomfort [Recovered/Resolved]
  - Dyspnoea [Recovered/Resolved]
  - Oropharyngeal pain [Recovered/Resolved]
  - Hyperhidrosis [Recovered/Resolved]
  - Hypoaesthesia oral [Recovered/Resolved]
  - Feeling hot [Recovered/Resolved]
  - Throat tightness [Recovered/Resolved]
  - Headache [Recovered/Resolved]
  - Paraesthesia [Recovered/Resolved]
  - Dizziness [Recovered/Resolved]
  - Flushing [Recovered/Resolved]
  - Nausea [Recovered/Resolved]
  - Muscular weakness [Recovered/Resolved]
  - Palpitations [Recovered/Resolved]
  - Dyspnoea [Recovered/Resolved]
  - Asthma [Recovered/Resolved]
  - Presyncope [Recovered/Resolved]

NARRATIVE: CASE EVENT DATE: 20210123
